FAERS Safety Report 4574148-5 (Version None)
Quarter: 2005Q1

REPORT INFORMATION
  Report Type: 
  Country: None (occurrence: None)
  Receive Date: 20050208
  Receipt Date: 20041025
  Transmission Date: 20050727
  Serious: No
  Sender: FDA-Public Use
  Company Number: US-GLAXOSMITHKLINE-A0531798A

PATIENT
  Sex: Female

DRUGS (2)
  1. PAXIL [Suspect]
     Indication: PANIC ATTACK
     Dosage: 20MG SEE DOSAGE TEXT
     Route: 048
     Dates: start: 19980101
  2. XANAX [Concomitant]

REACTIONS (7)
  - ANXIETY [None]
  - CONSTIPATION [None]
  - DRY MOUTH [None]
  - HEART RATE INCREASED [None]
  - HEART RATE IRREGULAR [None]
  - INSOMNIA [None]
  - WEIGHT INCREASED [None]
